FAERS Safety Report 8620314-9 (Version None)
Quarter: 2012Q3

REPORT INFORMATION
  Report Type: 
  Country: None (occurrence: None)
  Receive Date: 20120824
  Receipt Date: 20120816
  Transmission Date: 20120928
  Serious: Yes (Other)
  Sender: FDA-Public Use
  Company Number: US-PERRIGO-12US007227

PATIENT
  Sex: Female

DRUGS (1)
  1. LICE COMBO 866/9K1/0N8 PK 173 [Suspect]
     Indication: LICE INFESTATION
     Dosage: UNK, UNK
     Route: 065
     Dates: start: 20120816, end: 20120816

REACTIONS (2)
  - EYE SWELLING [None]
  - HYPERSENSITIVITY [None]
